FAERS Safety Report 6989788-3 (Version None)
Quarter: 2010Q3

REPORT INFORMATION
  Report Type: 
  Country: None (occurrence: None)
  Receive Date: 20100916
  Receipt Date: 20100315
  Transmission Date: 20110219
  Serious: Yes (Other)
  Sender: FDA-Public Use
  Company Number: US-PFIZER INC-2008070052

PATIENT
  Sex: Male
  Weight: 102.4 kg

DRUGS (8)
  1. LYRICA [Suspect]
     Indication: FIBROMYALGIA
     Dosage: 75 MG, 1X/DAY
  2. NEURONTIN [Suspect]
     Indication: PAIN
     Dosage: 600 MG, 3X/DAY
  3. VICODIN [Suspect]
     Indication: PAIN
     Dosage: UNK
     Dates: end: 20090101
  4. PRISTIQ [Suspect]
     Indication: DEPRESSION
     Dosage: 50 MG, 1X/DAY
     Dates: start: 20090101, end: 20090101
  5. EFFEXOR [Suspect]
     Indication: DEPRESSION
     Dosage: 150 MG, UNK
     Dates: start: 20090101, end: 20090101
  6. CYMBALTA [Suspect]
     Indication: DEPRESSION
     Dosage: 30 MG, 1X/DAY
     Dates: start: 20090101, end: 20090101
  7. WELLBUTRIN [Suspect]
     Indication: DEPRESSION
     Dosage: 450 MG, UNK
     Dates: start: 20090101
  8. PROZAC [Concomitant]
     Dosage: UNK

REACTIONS (6)
  - AGGRESSION [None]
  - AGITATION [None]
  - DISSOCIATION [None]
  - DRUG INEFFECTIVE [None]
  - HYPERHIDROSIS [None]
  - IRRITABILITY [None]
